FAERS Safety Report 9568815 (Version 1)
Quarter: 2013Q3

REPORT INFORMATION
  Report Type: Spontaneous
  Country: US (occurrence: US)
  Receive Date: 20130930
  Receipt Date: 20130930
  Transmission Date: 20140515
  Serious: No
  Sender: FDA-Public Use
  Company Number: US-AMGEN-USASP2013060662

PATIENT
  Age: 63 Year
  Sex: Female

DRUGS (8)
  1. ENBREL [Suspect]
     Indication: PRODUCT USED FOR UNKNOWN INDICATION
     Dosage: 50 MG, QWK
     Route: 058
  2. PREDNISONE [Concomitant]
     Dosage: 1 MG, UNK
  3. LEFLUNOMIDE [Concomitant]
     Dosage: 10 MG, UNK
  4. CALCIUM [Concomitant]
     Dosage: 600 UNK, UNK
  5. LOSARTAN POTASSIUM [Concomitant]
     Dosage: 100 MG, UNK
  6. ETODOLAC [Concomitant]
     Dosage: 200 MG, UNK
  7. BABY ASPIRIN [Concomitant]
     Dosage: 81 MG, UNK
  8. VITAMIN D3 [Concomitant]
     Dosage: 10000 UNIT,

REACTIONS (2)
  - Pain in extremity [Unknown]
  - Rash papular [Unknown]
